FAERS Safety Report 12301367 (Version 2)
Quarter: 2016Q2

REPORT INFORMATION
  Report Type: Spontaneous
  Country: FR (occurrence: FR)
  Receive Date: 20160425
  Receipt Date: 20160428
  Transmission Date: 20160815
  Serious: Yes (Hospitalization)
  Sender: FDA-Public Use
  Company Number: FR-MYLANLABS-2016M1016414

PATIENT

DRUGS (5)
  1. PREDNISOLONE. [Suspect]
     Active Substance: PREDNISOLONE
     Indication: IMMUNOSUPPRESSANT DRUG THERAPY
     Dosage: 7 MG/DAY; LAST 10 YEARS
     Route: 065
  2. RIFABUTIN. [Suspect]
     Active Substance: RIFABUTIN
     Indication: MYCOBACTERIUM AVIUM COMPLEX INFECTION
     Dosage: 300 MG/DAY
     Route: 065
  3. ETHAMBUTOL [Suspect]
     Active Substance: ETHAMBUTOL HYDROCHLORIDE
     Indication: MYCOBACTERIUM AVIUM COMPLEX INFECTION
     Dosage: 500 MG/DAY
     Route: 065
  4. AZATHIOPRINE. [Suspect]
     Active Substance: AZATHIOPRINE
     Indication: IMMUNOSUPPRESSANT DRUG THERAPY
     Dosage: 25 MG/DAY; LAST 10 YEARS
     Route: 065
  5. CLARITHROMYCIN. [Suspect]
     Active Substance: CLARITHROMYCIN
     Indication: MYCOBACTERIUM AVIUM COMPLEX INFECTION
     Dosage: 1G/DAY
     Route: 065

REACTIONS (2)
  - Hepatitis toxic [Recovering/Resolving]
  - Mycobacterium avium complex infection [Recovered/Resolved]
